FAERS Safety Report 23293257 (Version 1)
Quarter: 2023Q4

REPORT INFORMATION
  Report Type: Spontaneous
  Country: US (occurrence: US)
  Receive Date: 20231213
  Receipt Date: 20231213
  Transmission Date: 20240110
  Serious: No
  Sender: FDA-Public Use
  Company Number: US-NOVOPROD-1038895

PATIENT
  Sex: Female

DRUGS (1)
  1. LEVEMIR [Suspect]
     Active Substance: INSULIN DETEMIR
     Indication: Type 2 diabetes mellitus
     Dosage: 30 UNITS AM/ 60 UNITS PM
     Route: 058

REACTIONS (3)
  - Scratch [Not Recovered/Not Resolved]
  - Memory impairment [Unknown]
  - Product use complaint [Not Recovered/Not Resolved]
